FAERS Safety Report 11566030 (Version 1)
Quarter: 2015Q3

REPORT INFORMATION
  Report Type: Spontaneous
  Country: US (occurrence: US)
  Receive Date: 20150916
  Receipt Date: 20150916
  Transmission Date: 20151125
  Serious: No
  Sender: FDA-Public Use
  Company Number: US-ELI_LILLY_AND_COMPANY-US200905003919

PATIENT
  Age: 66 Year
  Sex: Female

DRUGS (4)
  1. VITAMIN D [Concomitant]
     Active Substance: CHOLECALCIFEROL
  2. CALCIUM [Concomitant]
     Active Substance: CALCIUM
  3. ENZYMES [Concomitant]
     Indication: DYSPEPSIA
     Dates: start: 20090512, end: 2009
  4. FORTEO [Suspect]
     Active Substance: TERIPARATIDE
     Dates: start: 200808, end: 20090515

REACTIONS (3)
  - Insomnia [Recovered/Resolved]
  - Dysstasia [Recovered/Resolved]
  - Pain in extremity [Recovered/Resolved]

NARRATIVE: CASE EVENT DATE: 200905
